FAERS Safety Report 5594791-4 (Version None)
Quarter: 2008Q1

REPORT INFORMATION
  Report Type: 
  Country: None (occurrence: None)
  Receive Date: 20080117
  Receipt Date: 20080115
  Transmission Date: 20080703
  Serious: Yes (Hospitalization)
  Sender: FDA-Public Use
  Company Number: B0477462A

PATIENT
  Age: 4 Year
  Sex: Male

DRUGS (1)
  1. ARIXTRA [Suspect]
     Dosage: 2.5MG PER DAY
     Route: 058
     Dates: start: 20070621, end: 20070622

REACTIONS (8)
  - ANOREXIA [None]
  - FATIGUE [None]
  - GAMMA-GLUTAMYLTRANSFERASE INCREASED [None]
  - HEPATITIS [None]
  - HEPATOCELLULAR INJURY [None]
  - INTENTIONAL DRUG MISUSE [None]
  - TRANSAMINASES INCREASED [None]
  - VOMITING [None]
